FAERS Safety Report 9156099 (Version 1)
Quarter: 2013Q1

REPORT INFORMATION
  Report Type: Spontaneous
  Country: US (occurrence: US)
  Receive Date: 20130311
  Receipt Date: 20130311
  Transmission Date: 20140127
  Serious: No
  Sender: FDA-Public Use
  Company Number: US-009507513-1303USA003184

PATIENT
  Sex: Male

DRUGS (4)
  1. VICTRELIS [Suspect]
     Indication: HEPATITIS C
     Dosage: 800 MG, TID
     Route: 048
     Dates: start: 20120824
  2. PEGASYS [Suspect]
  3. RIBAPAK [Suspect]
  4. ENALAPRIL MALEATE [Concomitant]

REACTIONS (2)
  - Mood swings [Unknown]
  - Pruritus [Unknown]
